FAERS Safety Report 22672058 (Version 4)
Quarter: 2024Q1

REPORT INFORMATION
  Report Type: Report from Study
  Country: IT (occurrence: IT)
  Receive Date: 20230705
  Receipt Date: 20240127
  Transmission Date: 20240410
  Serious: No
  Sender: FDA-Public Use
  Company Number: IT-UCBSA-2023013943

PATIENT
  Sex: Male

DRUGS (6)
  1. NEUPRO [Suspect]
     Active Substance: ROTIGOTINE
     Indication: Restless legs syndrome
     Dosage: 2 MILLIGRAM, ONCE DAILY (QD)
     Route: 062
     Dates: start: 2021
  2. NEUPRO [Suspect]
     Active Substance: ROTIGOTINE
     Indication: Parkinsonism
     Dosage: 4 MILLIGRAM, ONCE DAILY (QD)
     Route: 062
     Dates: start: 2022
  3. NEUPRO [Suspect]
     Active Substance: ROTIGOTINE
     Dosage: 4 MILLIGRAM, EV 2 DAYS (QOD), 1 PATCH EVERY 48 HOURS
     Route: 062
     Dates: start: 20230309, end: 2023
  4. NEUPRO [Suspect]
     Active Substance: ROTIGOTINE
     Dosage: 2 MILLIGRAM, ONCE DAILY (QD)
     Route: 062
     Dates: start: 2023, end: 20231127
  5. SINEMET [Concomitant]
     Active Substance: CARBIDOPA\LEVODOPA
     Indication: Restless legs syndrome
     Dosage: 4 TABLETS PER DAY
     Dates: start: 2022
  6. SINEMET [Concomitant]
     Active Substance: CARBIDOPA\LEVODOPA
     Dosage: 3 TABLETS PER DAY
     Dates: start: 2023

REACTIONS (21)
  - Movement disorder [Not Recovered/Not Resolved]
  - Somnolence [Recovered/Resolved]
  - Muscle strain [Not Recovered/Not Resolved]
  - Urticaria [Not Recovered/Not Resolved]
  - Constipation [Not Recovered/Not Resolved]
  - Muscle discomfort [Unknown]
  - Limb discomfort [Unknown]
  - Pruritus [Unknown]
  - Contusion [Unknown]
  - Scar [Unknown]
  - Hypersensitivity [Not Recovered/Not Resolved]
  - Irritability [Unknown]
  - Nervousness [Recovered/Resolved]
  - Myalgia [Recovered/Resolved]
  - Restless legs syndrome [Recovered/Resolved]
  - Drug intolerance [Unknown]
  - Product adhesion issue [Unknown]
  - Product availability issue [Unknown]
  - Wrong technique in product usage process [Unknown]
  - Incorrect product administration duration [Unknown]
  - Product dose omission issue [Unknown]

NARRATIVE: CASE EVENT DATE: 20210101
